FAERS Safety Report 4692284-X (Version None)
Quarter: 2005Q2

REPORT INFORMATION
  Report Type: 
  Country: None (occurrence: None)
  Receive Date: 20050616
  Receipt Date: 20050603
  Transmission Date: 20051028
  Serious: Yes (Disabling)
  Sender: FDA-Public Use
  Company Number: 2005085101

PATIENT
  Age: 53 Year
  Sex: Male

DRUGS (2)
  1. DOXYCYCLINE [Suspect]
     Indication: PERIODONTAL DISEASE
     Dosage: 40 MG (20 MG, BID), ORAL
     Route: 048
     Dates: start: 20050413, end: 20050424
  2. CEPHALEXIN [Concomitant]

REACTIONS (1)
  - MONOPLEGIA [None]
